FAERS Safety Report 12108295 (Version 1)
Quarter: 2016Q1

REPORT INFORMATION
  Report Type: Spontaneous
  Country: US (occurrence: US)
  Receive Date: 20160224
  Receipt Date: 20160224
  Transmission Date: 20160526
  Serious: No
  Sender: FDA-Public Use
  Company Number: US-009507513-1602USA010775

PATIENT
  Age: 25 Year
  Sex: Female

DRUGS (1)
  1. ELOCON [Suspect]
     Active Substance: MOMETASONE FUROATE
     Indication: ERYTHEMA DYSCHROMICUM PERSTANS
     Dosage: DAILY TOPICAL MOMETASONE
     Route: 061

REACTIONS (1)
  - Drug ineffective [Unknown]
